FAERS Safety Report 5344154-1 (Version None)
Quarter: 2007Q2

REPORT INFORMATION
  Report Type: 
  Country: None (occurrence: None)
  Receive Date: 20070604
  Receipt Date: 20070517
  Transmission Date: 20071010
  Serious: Yes (Other)
  Sender: FDA-Public Use
  Company Number: US-SANOFI-SYNTHELABO-A03200703416

PATIENT
  Age: 53 Year
  Sex: Male

DRUGS (8)
  1. BENADRYL [Concomitant]
     Dosage: UNK
     Route: 065
  2. FOLIC ACID [Concomitant]
     Dosage: UNK
     Route: 065
  3. XANAX [Concomitant]
     Dosage: UNK
     Route: 065
  4. SOMA [Concomitant]
     Dosage: UNK
     Route: 065
  5. ULTRAM [Concomitant]
     Dosage: UNK
     Route: 048
  6. MORPHINE [Concomitant]
     Dosage: UNK
     Route: 065
  7. ASPIRIN [Concomitant]
     Dosage: UNK
     Route: 048
  8. PLAVIX [Suspect]
     Indication: DRUG USE FOR UNKNOWN INDICATION
     Dosage: UNK
     Route: 048

REACTIONS (1)
  - PHLEBITIS [None]
